FAERS Safety Report 7061478-0 (Version None)
Quarter: 2010Q4

REPORT INFORMATION
  Report Type: 
  Country: None (occurrence: None)
  Receive Date: 20101026
  Receipt Date: 20101021
  Transmission Date: 20110411
  Serious: Yes (Other)
  Sender: FDA-Public Use
  Company Number: JP-BAYER-200911911BYL

PATIENT
  Age: 54 Year
  Sex: Male
  Weight: 86 kg

DRUGS (8)
  1. NEXAVAR [Suspect]
     Indication: RENAL CELL CARCINOMA
     Dosage: UNIT DOSE: 200 MG
     Route: 048
     Dates: start: 20081107, end: 20081119
  2. NEXAVAR [Suspect]
     Dosage: UNIT DOSE: 200 MG
     Route: 048
     Dates: start: 20081119, end: 20081225
  3. NEXAVAR [Suspect]
     Dosage: UNIT DOSE: 200 MG
     Route: 048
     Dates: start: 20081225
  4. DERMOVATE [Concomitant]
     Route: 061
     Dates: start: 20081225
  5. URSO 250 [Concomitant]
     Route: 048
     Dates: start: 20081117, end: 20090304
  6. LOXONIN [Concomitant]
     Indication: PAIN
     Route: 048
     Dates: start: 20081110
  7. SELBEX [Concomitant]
     Indication: PROPHYLAXIS AGAINST GASTROINTESTINAL ULCER
     Route: 048
     Dates: start: 20081110
  8. ALBUMIN TANNATE [Concomitant]
     Route: 048
     Dates: start: 20090705

REACTIONS (4)
  - ALOPECIA [None]
  - DIARRHOEA [None]
  - HEPATIC FUNCTION ABNORMAL [None]
  - PALMAR-PLANTAR ERYTHRODYSAESTHESIA SYNDROME [None]
